FAERS Safety Report 25417353 (Version 1)
Quarter: 2025Q2

REPORT INFORMATION
  Report Type: Spontaneous
  Country: US (occurrence: None)
  Receive Date: 20250608
  Receipt Date: 20250608
  Transmission Date: 20250717
  Serious: Yes (Disabling, Other)
  Sender: FDA-CTU
  Company Number: None

PATIENT
  Age: 37 Year
  Sex: Male
  Weight: 65.25 kg

DRUGS (1)
  1. LEXAPRO [Suspect]
     Active Substance: ESCITALOPRAM OXALATE
     Indication: Depression

REACTIONS (8)
  - Withdrawal syndrome [None]
  - Depression [None]
  - Anxiety [None]
  - Insomnia [None]
  - Restless legs syndrome [None]
  - Periarthritis [None]
  - Glioblastoma [None]
  - Loss of personal independence in daily activities [None]

NARRATIVE: CASE EVENT DATE: 20160423
